FAERS Safety Report 5977020-9 (Version None)
Quarter: 2008Q4

REPORT INFORMATION
  Report Type: 
  Country: None (occurrence: None)
  Receive Date: 20081202
  Receipt Date: 20081202
  Transmission Date: 20090506
  Serious: Yes (Hospitalization)
  Sender: FDA-Public Use
  Company Number: None

PATIENT
  Age: 73 Year
  Sex: Male
  Weight: 80.74 kg

DRUGS (1)
  1. FORMOTEROL FUMARATE [Suspect]
     Indication: CHRONIC OBSTRUCTIVE PULMONARY DISEASE
     Dosage: 12 MCG BID INHALE
     Route: 055
     Dates: start: 20081009, end: 20081125

REACTIONS (3)
  - ANXIETY [None]
  - CONDITION AGGRAVATED [None]
  - TACHYCARDIA [None]
